FAERS Safety Report 10700328 (Version 1)
Quarter: 2015Q1

REPORT INFORMATION
  Report Type: Spontaneous
  Country: US (occurrence: None)
  Receive Date: 20150108
  Receipt Date: 20150108
  Transmission Date: 20150721
  Serious: Yes (Other)
  Sender: FDA-Public Use
  Company Number: None

PATIENT
  Age: 55 Year
  Sex: Female

DRUGS (6)
  1. PROGESTERONE. [Concomitant]
     Active Substance: PROGESTERONE
  2. SYNTHROID [Concomitant]
     Active Substance: LEVOTHYROXINE SODIUM
  3. OMEPRAZOLE. [Concomitant]
     Active Substance: OMEPRAZOLE
  4. ESTROGEN GEL [Concomitant]
  5. NAPROSYN [Concomitant]
     Active Substance: NAPROXEN
  6. ZOLEDRONIC ACID [Suspect]
     Active Substance: ZOLEDRONIC ACID
     Indication: OSTEOPOROSIS
     Dosage: ONCE ANNUALLY
     Route: 042
     Dates: start: 20141230, end: 20141230

REACTIONS (6)
  - Eye pruritus [None]
  - Pain [None]
  - Swelling face [None]
  - Erythema [None]
  - Facial pain [None]
  - Rash [None]

NARRATIVE: CASE EVENT DATE: 20141231
